FAERS Safety Report 15539080 (Version 1)
Quarter: 2018Q4

REPORT INFORMATION
  Report Type: Spontaneous
  Country: US (occurrence: US)
  Receive Date: 20181022
  Receipt Date: 20181022
  Transmission Date: 20190205
  Serious: No
  Sender: FDA-Public Use
  Company Number: US-TEIKOKU PHARMA USA-TPU2018-00580

PATIENT
  Sex: Male
  Weight: 98.97 kg

DRUGS (2)
  1. OTHER MEDICATIONS [Concomitant]
     Active Substance: UNSPECIFIED INGREDIENT
  2. LIDOCAINE PATCH [Suspect]
     Active Substance: LIDOCAINE
     Indication: BACK PAIN
     Dosage: KEEP THEM ON 4-5 HOURS ON MY BACK
     Route: 061

REACTIONS (2)
  - Hypoacusis [Unknown]
  - Drug ineffective for unapproved indication [Unknown]
